FAERS Safety Report 19827871 (Version 2)
Quarter: 2021Q4

REPORT INFORMATION
  Report Type: Spontaneous
  Country: US (occurrence: US)
  Receive Date: 20210914
  Receipt Date: 20211027
  Transmission Date: 20220303
  Serious: No
  Sender: FDA-Public Use
  Company Number: US-PFIZER INC-202101162002

PATIENT
  Age: 62 Year
  Sex: Female
  Weight: 63.95 kg

DRUGS (1)
  1. IBRANCE [Suspect]
     Active Substance: PALBOCICLIB
     Indication: Breast cancer female
     Dosage: 125 MG, CYCLIC (1 DAILY FOR 21 DAYS)
     Route: 048
     Dates: start: 20210808

REACTIONS (4)
  - Pleural effusion [Unknown]
  - Cystitis [Unknown]
  - Asthenia [Unknown]
  - Cough [Unknown]
